FAERS Safety Report 15616315 (Version 1)
Quarter: 2018Q4

REPORT INFORMATION
  Report Type: Report from Study
  Country: UG (occurrence: UG)
  Receive Date: 20181114
  Receipt Date: 20181114
  Transmission Date: 20190205
  Serious: Yes (Other)
  Sender: FDA-Public Use
  Company Number: UG-MYLANLABS-2018M1086692

PATIENT
  Age: 36 Year
  Sex: Female

DRUGS (2)
  1. LAMIVUDINE/TENOFOVIR ALAFENAMIDE [Suspect]
     Active Substance: LAMIVUDINE\TENOFOVIR
     Indication: HIV INFECTION
     Dosage: 1 TAB/CAPS
     Route: 048
     Dates: start: 20180509
  2. TIVICAY [Suspect]
     Active Substance: DOLUTEGRAVIR SODIUM
     Indication: HIV INFECTION
     Dosage: 50 MG, QD
     Route: 048

REACTIONS (2)
  - Stillbirth [Recovered/Resolved]
  - Exposure during pregnancy [Recovered/Resolved]

NARRATIVE: CASE EVENT DATE: 20180612
